FAERS Safety Report 10775988 (Version 4)
Quarter: 2016Q1

REPORT INFORMATION
  Report Type: Report from Study
  Country: US (occurrence: US)
  Receive Date: 20150209
  Receipt Date: 20160201
  Transmission Date: 20160525
  Serious: Yes (Hospitalization)
  Sender: FDA-Public Use
  Company Number: US-SA-2015SA014467

PATIENT
  Age: 62 Year
  Sex: Female

DRUGS (1)
  1. AUBAGIO [Suspect]
     Active Substance: TERIFLUNOMIDE
     Indication: MULTIPLE SCLEROSIS
     Route: 048
     Dates: start: 20131013

REACTIONS (6)
  - Cheilitis [Unknown]
  - Pneumonia [Recovering/Resolving]
  - Malaise [Unknown]
  - Oral candidiasis [Unknown]
  - Cough [Recovering/Resolving]
  - Oral pain [Unknown]

NARRATIVE: CASE EVENT DATE: 201502
